FAERS Safety Report 16632774 (Version 1)
Quarter: 2019Q3

REPORT INFORMATION
  Report Type: Spontaneous
  Country: DE (occurrence: DE)
  Receive Date: 20190725
  Receipt Date: 20190725
  Transmission Date: 20191004
  Serious: Yes (Hospitalization)
  Sender: FDA-Public Use
  Company Number: DE-PFIZER INC-2019310396

PATIENT
  Age: 90 Year
  Sex: Male

DRUGS (11)
  1. CLOPIDOGREL [Suspect]
     Active Substance: CLOPIDOGREL BISULFATE
     Dosage: 75 MG, 1X/DAY, 0-1-0-0
  2. PANTOPRAZOLE [Concomitant]
     Active Substance: PANTOPRAZOLE
     Dosage: 40 MG, 2X/DAY, 1-0-1-0
  3. TAMSULOSIN [Concomitant]
     Active Substance: TAMSULOSIN
     Dosage: 0.4 MG, 1X/DAY, 1-0-0-0
  4. IBUPROFEN. [Suspect]
     Active Substance: IBUPROFEN
     Dosage: 400 MG, 2X/DAY, 1-0-1-0, FOR A FEW DAYS
  5. LANTUS [Concomitant]
     Active Substance: INSULIN GLARGINE
     Dosage: 20 IU, 22:00
  6. TORASEMIDE [Concomitant]
     Active Substance: TORSEMIDE
     Dosage: 10 MG, 2X/DAY, 1-1-0-0
  7. SULTANOL [Concomitant]
     Active Substance: ALBUTEROL SULFATE
     Dosage: UNK MG, UNK (5-5-5-0, DROPS)
     Route: 055
  8. ATROVENT [Concomitant]
     Active Substance: IPRATROPIUM BROMIDE
     Dosage: UNK MG, UNK, 20-20-20-0
     Route: 055
  9. AMLODIPINE [Concomitant]
     Active Substance: AMLODIPINE BESYLATE
     Dosage: 5 MG, 1X/DAY, 1-0-0-0
  10. SIMVASTATIN. [Concomitant]
     Active Substance: SIMVASTATIN
     Dosage: 20 MG, 0-0-2-0
  11. XIPAMIDE [Concomitant]
     Active Substance: XIPAMIDE
     Dosage: 10 MG, 1X/DAY, 1-0-0-0

REACTIONS (4)
  - Dyspnoea [Unknown]
  - Anaemia [Unknown]
  - Chest pain [Unknown]
  - Headache [Unknown]
